FAERS Safety Report 9004260 (Version 2)
Quarter: 2013Q1

REPORT INFORMATION
  Report Type: Report from Study
  Country: DE (occurrence: DE)
  Receive Date: 20130108
  Receipt Date: 20130109
  Transmission Date: 20140127
  Serious: Yes (Other)
  Sender: FDA-Public Use
  Company Number: DE-ROCHE-1177269

PATIENT
  Sex: Male

DRUGS (6)
  1. RANIBIZUMAB [Suspect]
     Indication: AGE-RELATED MACULAR DEGENERATION
     Route: 050
     Dates: start: 20110228
  2. RANIBIZUMAB [Suspect]
     Route: 050
     Dates: start: 20110328
  3. RANIBIZUMAB [Suspect]
     Route: 050
     Dates: start: 20110502
  4. RANIBIZUMAB [Suspect]
     Route: 050
     Dates: start: 201201
  5. RANIBIZUMAB [Suspect]
     Route: 050
     Dates: start: 201202
  6. RANIBIZUMAB [Suspect]
     Route: 050
     Dates: start: 201203

REACTIONS (2)
  - Macular degeneration [Not Recovered/Not Resolved]
  - Visual acuity reduced [Not Recovered/Not Resolved]
